FAERS Safety Report 5075097-9 (Version None)
Quarter: 2006Q3

REPORT INFORMATION
  Report Type: 
  Country: None (occurrence: None)
  Receive Date: 20060803
  Receipt Date: 20060803
  Transmission Date: 20061208
  Serious: Yes (Hospitalization)
  Sender: FDA-Public Use
  Company Number: None

PATIENT
  Age: 68 Year
  Sex: Male
  Weight: 78 kg

DRUGS (1)
  1. FLOURESCEIN DYE   25%  2ML   AKORN [Suspect]
     Indication: OPHTHALMOLOGICAL EXAMINATION
     Dosage: IV
     Route: 042

REACTIONS (3)
  - ANAPHYLACTIC SHOCK [None]
  - ARRHYTHMIA [None]
  - CARDIO-RESPIRATORY ARREST [None]
